FAERS Safety Report 25870308 (Version 3)
Quarter: 2025Q4

REPORT INFORMATION
  Report Type: Report from Study
  Country: US (occurrence: US)
  Receive Date: 20251001
  Receipt Date: 20251216
  Transmission Date: 20260117
  Serious: No
  Sender: PFIZER
  Company Number: US-PFIZER INC-202500193574

PATIENT
  Age: 69 Year
  Sex: Female

DRUGS (5)
  1. IBRANCE [Suspect]
     Active Substance: PALBOCICLIB
     Indication: Breast cancer female
     Dosage: 100 MG, CYCLIC (ONCE DAILY WITH OR WITHOUT FOOD FOR 21 DAYS ON AND 7 DAYS OFF)
     Route: 048
  2. IBRANCE [Suspect]
     Active Substance: PALBOCICLIB
     Dosage: 75 MG, CYCLIC (75 MG, CYCLIC (ONCE DAILY WITH OR WITHOUT FOOD FOR 7 DAYS ON AND 7 DAYS OFF))
     Route: 048
  3. IBRANCE [Suspect]
     Active Substance: PALBOCICLIB
     Dosage: 125 MG, CYCLIC ( TAKE 1 TABLET ONCE DAILY WITH OR WITHOUT FOOD FOR 7 DAYS ON AND 7 DAYS OFF)
     Route: 048
  4. IBRANCE [Suspect]
     Active Substance: PALBOCICLIB
     Dosage: 75 MG CYCLIC (75 MG, CYCLIC (DAILY WITH OR WITHOUT FOOD FOR 7 DAYS ON THEN 7 DAYS OFF))
     Route: 048
  5. IBRANCE [Suspect]
     Active Substance: PALBOCICLIB
     Dosage: 75 MG CYCLIC (75 MG, CYCLIC (ONCE DAILY 7 DAYS ON AND 7 DAYS OFF))
     Route: 048

REACTIONS (3)
  - Abdominal discomfort [Unknown]
  - Hyperchlorhydria [Unknown]
  - Off label use [Unknown]
